FAERS Safety Report 23793193 (Version 1)
Quarter: 2024Q2

REPORT INFORMATION
  Report Type: Spontaneous
  Country: US (occurrence: US)
  Receive Date: 20240429
  Receipt Date: 20240429
  Transmission Date: 20240716
  Serious: Yes (Hospitalization)
  Sender: FDA-Public Use
  Company Number: US-ALKEM LABORATORIES LIMITED-TH-ALKEM-2023-03781

PATIENT
  Age: 58 Year
  Sex: Male

DRUGS (1)
  1. DABIGATRAN ETEXILATE MESYLATE [Suspect]
     Active Substance: DABIGATRAN ETEXILATE MESYLATE
     Indication: Atrial fibrillation
     Dosage: 150 MILLIGRAM, BID (TWICE DAILY)
     Route: 065

REACTIONS (3)
  - Coagulopathy [Recovering/Resolving]
  - Epistaxis [Recovering/Resolving]
  - Anticoagulation drug level above therapeutic [Recovering/Resolving]
